FAERS Safety Report 20512331 (Version 1)
Quarter: 2022Q1

REPORT INFORMATION
  Report Type: Spontaneous
  Country: US (occurrence: None)
  Receive Date: 20220223
  Receipt Date: 20220223
  Transmission Date: 20220423
  Serious: Yes (Other)
  Sender: FDA-Public Use
  Company Number: None

PATIENT
  Age: 27 Year
  Sex: Male
  Weight: 94.5 kg

DRUGS (8)
  1. CETIRIZINE [Suspect]
     Active Substance: CETIRIZINE HYDROCHLORIDE
     Indication: Seasonal allergy
     Dosage: OTHER QUANTITY : 1 TABLET(S);?FREQUENCY : AT BEDTIME;?
     Route: 048
     Dates: start: 20211108, end: 20220223
  2. NIFEDIPINE [Concomitant]
     Active Substance: NIFEDIPINE
  3. LOSARTAN [Concomitant]
     Active Substance: LOSARTAN
  4. HYDROCHLOROTHIAZIDE [Concomitant]
     Active Substance: HYDROCHLOROTHIAZIDE
  5. FLUOXETINE [Concomitant]
     Active Substance: FLUOXETINE HYDROCHLORIDE
  6. CETIRIZINE [Concomitant]
     Active Substance: CETIRIZINE HYDROCHLORIDE
  7. DAILY MULTIVITAMIN [Concomitant]
  8. vitamin drink [Concomitant]

REACTIONS (7)
  - Therapy cessation [None]
  - Nasal dryness [None]
  - Epistaxis [None]
  - Pruritus [None]
  - Pruritus [None]
  - Pruritus [None]
  - Disturbance in attention [None]

NARRATIVE: CASE EVENT DATE: 20220223
